FAERS Safety Report 14938936 (Version 3)
Quarter: 2018Q4

REPORT INFORMATION
  Report Type: Report from Study
  Country: JP (occurrence: JP)
  Receive Date: 20180525
  Receipt Date: 20181231
  Transmission Date: 20190204
  Serious: Yes (Death, Life-Threatening, Hospitalization, Other)
  Sender: FDA-Public Use
  Company Number: JP-JNJFOC-20180532486

PATIENT
  Age: 47 Year
  Sex: Female
  Weight: 84 kg

DRUGS (51)
  1. MIYA-BM [Concomitant]
     Active Substance: CLOSTRIDIUM BUTYRICUM SPORES STRAIN M-55
     Indication: COLITIS ULCERATIVE
     Route: 048
     Dates: end: 20180407
  2. CLOSTRIDIUM BUTYRICUM [Concomitant]
     Active Substance: CLOSTRIDIUM BUTYRICUM SPORES STRAIN M-55
     Indication: COLITIS ULCERATIVE
     Route: 048
     Dates: end: 20180407
  3. FERROUS CITRATE NA [Concomitant]
     Active Substance: SODIUM FERROUS CITRATE
     Indication: ANAEMIA
     Route: 048
  4. FUNGUARD [Concomitant]
     Active Substance: MICAFUNGIN SODIUM
     Route: 065
  5. ACETAMINOPHEN. [Concomitant]
     Active Substance: ACETAMINOPHEN
     Route: 042
  6. SIMPONI [Suspect]
     Active Substance: GOLIMUMAB
     Indication: COLITIS ULCERATIVE
     Route: 058
     Dates: start: 20180213, end: 20180213
  7. CRAVIT [Concomitant]
     Active Substance: LEVOFLOXACIN
     Route: 065
  8. TAZOPIPE [Concomitant]
     Active Substance: PIPERACILLIN SODIUM\TAZOBACTAM SODIUM
     Route: 042
  9. SOSEGON [Concomitant]
     Active Substance: PENTAZOCINE
     Route: 065
  10. FILGRASTIM BS [Concomitant]
     Active Substance: FILGRASTIM
     Route: 065
  11. KAYTWO [Concomitant]
     Active Substance: MENATETRENONE
     Route: 042
  12. SOLDACTONE [Concomitant]
     Active Substance: CANRENOATE POTASSIUM
     Route: 042
  13. SOLYUGEN [Concomitant]
     Route: 065
  14. ISOTONIC SODIUM CHLORIDE SOLUTION [Concomitant]
     Active Substance: SODIUM CHLORIDE
     Route: 065
  15. HYDROXYZINE HYDROCHLORIDE. [Concomitant]
     Active Substance: HYDROXYZINE HYDROCHLORIDE
     Route: 061
  16. BEZAFIBRATE [Concomitant]
     Active Substance: BEZAFIBRATE
     Route: 048
  17. SALAZOSULFAPYRIDINE [Concomitant]
     Active Substance: SULFASALAZINE
     Indication: COLITIS ULCERATIVE
     Route: 048
     Dates: start: 20180321, end: 20180407
  18. PETHIDINE HYDROCHLORIDE [Concomitant]
     Active Substance: MEPERIDINE HYDROCHLORIDE
     Route: 065
  19. FERRIC OXIDE, SACCHARATED [Concomitant]
     Route: 042
  20. THIAMINE DISULFIDE PHOSPHATE [Concomitant]
     Route: 042
  21. ZINC OXIDE. [Concomitant]
     Active Substance: ZINC OXIDE
     Route: 061
  22. URSO [Concomitant]
     Active Substance: URSODIOL
     Route: 048
  23. REMINARON [Concomitant]
     Active Substance: GABEXATE MESYLATE
     Route: 065
  24. FINIBAX [Concomitant]
     Active Substance: DORIPENEM MONOHYDRATE
     Route: 041
  25. FAMOTIDINE. [Concomitant]
     Active Substance: FAMOTIDINE
     Route: 065
  26. GLUCOSE [Concomitant]
     Active Substance: DEXTROSE
     Route: 065
  27. LIALDA [Concomitant]
     Active Substance: MESALAMINE
     Indication: COLITIS ULCERATIVE
     Route: 048
     Dates: start: 20180322
  28. CEFMETAZOLE NA [Concomitant]
     Active Substance: CEFMETAZOLE
     Route: 065
  29. MEDICON [Concomitant]
     Active Substance: DEXTROMETHORPHAN HYDROBROMIDE
     Route: 048
  30. RECOMODULIN [Concomitant]
     Active Substance: THROMBOMODULIN ALFA
     Route: 041
  31. POTASSIUM ASPARTATE [Concomitant]
     Active Substance: POTASSIUM ASPARTATE
     Route: 042
  32. REBAMIPIDE [Concomitant]
     Active Substance: REBAMIPIDE
     Indication: PROPHYLAXIS
     Route: 048
  33. MEROPENEM. [Concomitant]
     Active Substance: MEROPENEM
     Route: 065
  34. LASIX [Concomitant]
     Active Substance: FUROSEMIDE
     Route: 065
  35. PANTHENOL [Concomitant]
     Active Substance: PANTHENOL
     Route: 065
  36. CINAL [Concomitant]
     Active Substance: ASCORBIC ACID\CALCIUM PANTOTHENATE
     Route: 048
  37. SOSEGON [Concomitant]
     Active Substance: PENTAZOCINE
     Route: 065
  38. NICARDIPINE HYDROCHLORIDE. [Concomitant]
     Active Substance: NICARDIPINE HYDROCHLORIDE
     Route: 065
  39. OMEPRAZOLE SODIUM [Concomitant]
     Active Substance: OMEPRAZOLE SODIUM
     Route: 065
  40. URSODEOXYCHOLIC ACID [Concomitant]
     Active Substance: URSODIOL
     Route: 048
  41. SIMPONI [Suspect]
     Active Substance: GOLIMUMAB
     Indication: COLITIS ULCERATIVE
     Route: 058
     Dates: start: 20180227, end: 20180227
  42. AZANIN [Concomitant]
     Active Substance: AZATHIOPRINE
     Indication: COLITIS ULCERATIVE
     Route: 048
     Dates: end: 20180407
  43. LOXOPROFEN [Concomitant]
     Active Substance: LOXOPROFEN
     Indication: PROPHYLAXIS
     Route: 048
  44. MEYLON [Concomitant]
     Active Substance: SODIUM BICARBONATE
     Route: 042
  45. PRIMPERAN [Concomitant]
     Active Substance: METOCLOPRAMIDE HYDROCHLORIDE
     Route: 065
  46. CLOSTRIDIUM BUTYRICUM [Concomitant]
     Active Substance: CLOSTRIDIUM BUTYRICUM SPORES STRAIN M-55
     Route: 048
  47. TERBINAFINE HYDROCHLORIDE. [Concomitant]
     Active Substance: TERBINAFINE HYDROCHLORIDE
     Route: 061
  48. OLIVE OIL [Concomitant]
     Active Substance: OLIVE OIL
     Route: 065
  49. VEEN D [Concomitant]
     Active Substance: CALCIUM CHLORIDE\DEXTROSE\POTASSIUM CHLORIDE\SODIUM ACETATE\SODIUM CHLORIDE
     Route: 065
  50. SAIREITO [Concomitant]
     Active Substance: HERBALS
     Route: 048
     Dates: end: 20180407
  51. POTASSIUM CHLORIDE. [Concomitant]
     Active Substance: POTASSIUM CHLORIDE
     Route: 065

REACTIONS (10)
  - Disseminated intravascular coagulation [Fatal]
  - Toxic skin eruption [Recovering/Resolving]
  - Pyrexia [Not Recovered/Not Resolved]
  - Acute kidney injury [Fatal]
  - Leukopenia [Recovering/Resolving]
  - Sepsis [Fatal]
  - Abdominal pain [Not Recovered/Not Resolved]
  - Colitis ulcerative [Fatal]
  - Hepatic function abnormal [Fatal]
  - Lower gastrointestinal haemorrhage [Fatal]

NARRATIVE: CASE EVENT DATE: 20180312
